FAERS Safety Report 19775549 (Version 1)
Quarter: 2021Q3

REPORT INFORMATION
  Report Type: Spontaneous
  Country: KR (occurrence: KR)
  Receive Date: 20210901
  Receipt Date: 20210901
  Transmission Date: 20211014
  Serious: No
  Sender: FDA-Public Use
  Company Number: KR-LUPIN PHARMACEUTICALS INC.-2021-16174

PATIENT
  Age: 36 Year
  Sex: Female

DRUGS (4)
  1. ETHAMBUTOL [Suspect]
     Active Substance: ETHAMBUTOL HYDROCHLORIDE
     Indication: DRUG PROVOCATION TEST
     Dosage: 10 MILLILITER, BID (SUSPENSION)
     Route: 048
  2. RIFAMPIN. [Suspect]
     Active Substance: RIFAMPIN
     Dosage: 30 MILLILITER, BID (SUSPENSION)
     Route: 048
  3. RIFAMPIN. [Suspect]
     Active Substance: RIFAMPIN
     Indication: DRUG PROVOCATION TEST
     Dosage: 10 MILLILITER, BID (SUSPENSION)
     Route: 048
  4. ETHAMBUTOL [Suspect]
     Active Substance: ETHAMBUTOL HYDROCHLORIDE
     Dosage: 30 MILLILITER, BID (SUSPENSION)
     Route: 048

REACTIONS (2)
  - Type IV hypersensitivity reaction [Unknown]
  - Rash maculo-papular [Unknown]
